FAERS Safety Report 20444896 (Version 1)
Quarter: 2022Q1

REPORT INFORMATION
  Report Type: Spontaneous
  Country: US (occurrence: US)
  Receive Date: 20220208
  Receipt Date: 20220208
  Transmission Date: 20220423
  Serious: No
  Sender: FDA-Public Use
  Company Number: US-SA-SAC20220207000092

PATIENT
  Age: 38 Year
  Sex: Female

DRUGS (2)
  1. DUPIXENT [Suspect]
     Active Substance: DUPILUMAB
     Indication: Asthma
     Route: 058
     Dates: start: 202110
  2. PREDNISONE [Suspect]
     Active Substance: PREDNISONE
     Dosage: 60MG

REACTIONS (2)
  - Steroid dependence [Unknown]
  - Product use issue [Unknown]

NARRATIVE: CASE EVENT DATE: 20220128
